FAERS Safety Report 22127339 (Version 1)
Quarter: 2023Q1

REPORT INFORMATION
  Report Type: Spontaneous
  Country: US (occurrence: US)
  Receive Date: 20230322
  Receipt Date: 20230322
  Transmission Date: 20230417
  Serious: No
  Sender: FDA-Public Use
  Company Number: US-ALLERGAN-2302666US

PATIENT
  Sex: Female

DRUGS (1)
  1. DEOXYCHOLIC ACID [Suspect]
     Active Substance: DEOXYCHOLIC ACID
     Indication: Lipolysis procedure
     Dosage: UNK, SINGLE
     Dates: start: 20230104, end: 20230104

REACTIONS (8)
  - Facial paralysis [Unknown]
  - Facial asymmetry [Unknown]
  - Pharyngitis streptococcal [Not Recovered/Not Resolved]
  - Off label use [Unknown]
  - Product administered at inappropriate site [Unknown]
  - Lymphadenopathy [Unknown]
  - Nerve injury [Unknown]
  - Injection site swelling [Unknown]
